FAERS Safety Report 6576282-7 (Version None)
Quarter: 2010Q1

REPORT INFORMATION
  Report Type: 
  Country: None (occurrence: None)
  Receive Date: 20100210
  Receipt Date: 20100202
  Transmission Date: 20100710
  Serious: Yes (Hospitalization, Other)
  Sender: FDA-Public Use
  Company Number: US-BIOGENIDEC-2009BI037789

PATIENT
  Sex: Female

DRUGS (4)
  1. TYSABRI [Suspect]
     Indication: MULTIPLE SCLEROSIS
     Route: 042
     Dates: start: 20071129
  2. PROVENTIL NEBS [Concomitant]
     Route: 055
  3. ADVAIR DISKUS 250/50 [Concomitant]
     Route: 055
  4. ZYRTEC [Concomitant]
     Route: 048

REACTIONS (2)
  - ASTHMA [None]
  - HERPES ZOSTER [None]
